FAERS Safety Report 11758839 (Version 2)
Quarter: 2015Q4

REPORT INFORMATION
  Report Type: Spontaneous
  Country: US (occurrence: US)
  Receive Date: 20151120
  Receipt Date: 20151203
  Transmission Date: 20160304
  Serious: Yes (Hospitalization)
  Sender: FDA-Public Use
  Company Number: US-PFIZER INC-2015386693

PATIENT
  Age: 71 Year
  Sex: Female
  Weight: 86 kg

DRUGS (1)
  1. INLYTA [Suspect]
     Active Substance: AXITINIB
     Indication: RENAL CANCER
     Dosage: 5 MG, 2X/DAY (Q12H; 1 TAB EVERY 12HRS)
     Route: 048
     Dates: start: 20151104, end: 20151124

REACTIONS (5)
  - Dyspnoea [Unknown]
  - Anxiety [Unknown]
  - Rash macular [Unknown]
  - Burning sensation [Unknown]
  - Gait disturbance [Unknown]
